FAERS Safety Report 5943394-8 (Version None)
Quarter: 2008Q4

REPORT INFORMATION
  Report Type: 
  Country: None (occurrence: None)
  Receive Date: 20081105
  Receipt Date: 20081105
  Transmission Date: 20090506
  Serious: No
  Sender: FDA-Public Use
  Company Number: None

PATIENT
  Sex: Male
  Weight: 99.7913 kg

DRUGS (1)
  1. AZASITE [Suspect]
     Indication: OCULAR SURFACE DISEASE
     Dosage: ONE DROP OU BID OPHTHALMIC
     Route: 047
     Dates: start: 20081010, end: 20081019

REACTIONS (3)
  - INCORRECT DOSE ADMINISTERED [None]
  - MEDICATION ERROR [None]
  - PRODUCT QUALITY ISSUE [None]
